FAERS Safety Report 20626737 (Version 1)
Quarter: 2022Q1

REPORT INFORMATION
  Report Type: Report from Study
  Country: PE (occurrence: PE)
  Receive Date: 20220323
  Receipt Date: 20220323
  Transmission Date: 20220423
  Serious: Yes (Other)
  Sender: FDA-Public Use
  Company Number: PE-NOVARTISPH-NVSC2022PE060453

PATIENT
  Age: 77 Year
  Sex: Female

DRUGS (1)
  1. ELTROMBOPAG OLAMINE [Suspect]
     Active Substance: ELTROMBOPAG OLAMINE
     Indication: Aplasia
     Dosage: 150 MG, QD
     Route: 048
     Dates: start: 20180717

REACTIONS (4)
  - Haemorrhage [Unknown]
  - Haematuria [Unknown]
  - Petechiae [Unknown]
  - Product supply issue [Unknown]

NARRATIVE: CASE EVENT DATE: 20220301
